FAERS Safety Report 6544347-1 (Version None)
Quarter: 2010Q1

REPORT INFORMATION
  Report Type: 
  Country: None (occurrence: None)
  Receive Date: 20100120
  Receipt Date: 20100120
  Transmission Date: 20100710
  Serious: Yes (Hospitalization)
  Sender: FDA-Public Use
  Company Number: None

PATIENT
  Age: 71 Year
  Sex: Female
  Weight: 65.7716 kg

DRUGS (1)
  1. NITROFURANTOIN MONO-MCR 100 MG. EON LABS [Suspect]
     Indication: URINARY TRACT INFECTION
     Dosage: 1 TWICE A DAY PO
     Route: 048
     Dates: start: 20100113, end: 20100114

REACTIONS (3)
  - HYPERSOMNIA [None]
  - LOSS OF CONSCIOUSNESS [None]
  - SOMNOLENCE [None]
